FAERS Safety Report 5316141-0 (Version None)
Quarter: 2007Q2

REPORT INFORMATION
  Report Type: 
  Country: None (occurrence: None)
  Receive Date: 20070503
  Receipt Date: 20070423
  Transmission Date: 20071010
  Serious: No
  Sender: FDA-Public Use
  Company Number: BR-ELI_LILLY_AND_COMPANY-BR200704006112

PATIENT
  Age: 84 Year
  Sex: Male

DRUGS (1)
  1. CIALIS [Suspect]
     Indication: ERECTILE DYSFUNCTION
     Dosage: 20 MG, OTHER
     Route: 048
     Dates: start: 20040101, end: 20070301

REACTIONS (7)
  - ASTHENIA [None]
  - DECREASED APPETITE [None]
  - FEELING HOT [None]
  - INSOMNIA [None]
  - LACRIMATION INCREASED [None]
  - PRIAPISM [None]
  - VISUAL DISTURBANCE [None]
